FAERS Safety Report 24166363 (Version 1)
Quarter: 2024Q3

REPORT INFORMATION
  Report Type: Spontaneous
  Country: CN (occurrence: CN)
  Receive Date: 20240802
  Receipt Date: 20240802
  Transmission Date: 20241016
  Serious: Yes (Other)
  Sender: TAKEDA
  Company Number: CN-HUTCHMED LIMITED-HMP2024CN01749

PATIENT
  Age: 52 Year
  Sex: Female
  Weight: 45.4 kg

DRUGS (7)
  1. FRUQUINTINIB [Suspect]
     Active Substance: FRUQUINTINIB
     Indication: Rectal cancer
     Dosage: 5 MILLIGRAM, QD
     Route: 048
     Dates: start: 20240415
  2. FRUQUINTINIB [Suspect]
     Active Substance: FRUQUINTINIB
     Indication: Metastases to liver
     Dosage: 4 MILLIGRAM, QD
     Route: 048
     Dates: start: 20240630, end: 20240720
  3. SINTILIMAB [Concomitant]
     Active Substance: SINTILIMAB
     Indication: Rectal cancer
     Dosage: 200 MILLIGRAM, QD
     Route: 041
     Dates: start: 20240415, end: 20240415
  4. SINTILIMAB [Concomitant]
     Active Substance: SINTILIMAB
     Indication: Metastases to liver
     Dosage: 200 MILLIGRAM, QD
     Route: 041
     Dates: start: 20240514, end: 20240514
  5. SINTILIMAB [Concomitant]
     Active Substance: SINTILIMAB
     Dosage: 200 MILLIGRAM, QD
     Route: 041
     Dates: start: 20240609, end: 20240609
  6. SINTILIMAB [Concomitant]
     Active Substance: SINTILIMAB
     Dosage: 200 MILLIGRAM, QD
     Route: 041
     Dates: start: 20240630, end: 20240630
  7. DEXTROSE [Concomitant]
     Active Substance: DEXTROSE\DEXTROSE MONOHYDRATE
     Indication: Vehicle solution use
     Dosage: 250 MILLILITER, QD
     Route: 041
     Dates: start: 20240426, end: 20240426

REACTIONS (2)
  - Neutrophil count decreased [Recovering/Resolving]
  - White blood cell count decreased [Recovering/Resolving]

NARRATIVE: CASE EVENT DATE: 20240721
